FAERS Safety Report 8954830 (Version 1)
Quarter: 2012Q4

REPORT INFORMATION
  Report Type: 
  Country: PL (occurrence: PL)
  Receive Date: 20121207
  Receipt Date: 20121207
  Transmission Date: 20130627
  Serious: Yes (Hospitalization)
  Sender: FDA-Public Use
  Company Number: PL-ASTRAZENECA-2012SE90697

PATIENT
  Age: 18627 Day
  Sex: Female

DRUGS (2)
  1. ENTOCORT [Suspect]
     Indication: CROHN^S DISEASE
     Route: 048
     Dates: start: 2004
  2. SALOFALK [Concomitant]
     Indication: CROHN^S DISEASE
     Route: 048

REACTIONS (1)
  - SAPHO syndrome [Unknown]
